FAERS Safety Report 8589808-9 (Version None)
Quarter: 2012Q3

REPORT INFORMATION
  Report Type: 
  Country: None (occurrence: None)
  Receive Date: 20120813
  Receipt Date: 19940330
  Transmission Date: 20120928
  Serious: Yes (Other)
  Sender: FDA-Public Use
  Company Number: US-ROCHE-1097640

PATIENT
  Age: 52 Year
  Sex: Male

DRUGS (6)
  1. ASPIRIN [Concomitant]
  2. FELDENE [Concomitant]
  3. NITROGLYCERIN [Concomitant]
     Route: 060
  4. TENORMIN 50 [Concomitant]
  5. ACTIVASE [Suspect]
     Indication: ACUTE MYOCARDIAL INFARCTION
  6. PREDNISONE TAB [Concomitant]

REACTIONS (3)
  - CARDIAC FAILURE [None]
  - DIABETES MELLITUS [None]
  - VENTRICULAR TACHYCARDIA [None]
